FAERS Safety Report 4277636-4 (Version None)
Quarter: 2004Q1

REPORT INFORMATION
  Report Type: 
  Country: None (occurrence: None)
  Receive Date: 20040121
  Receipt Date: 20031112
  Transmission Date: 20041129
  Serious: Yes (Hospitalization, Other)
  Sender: FDA-Public Use
  Company Number: KII-2003-0006884

PATIENT
  Age: 50 Year
  Sex: Male

DRUGS (3)
  1. OXYCODONE HYDROCHLORIDE (SIMILAR TO NDA 20-553) (OXYCODONE HYDROCHLORI [Suspect]
  2. ACETAMINOPHEN AND HYDROCODONE BITARTRATE [Suspect]
     Indication: BACK PAIN
     Dosage: ORAL
     Route: 048
  3. BENZODIAZEPINE DERIVATIVES [Suspect]

REACTIONS (6)
  - APNOEA [None]
  - HEART RATE DECREASED [None]
  - MEDICATION ERROR [None]
  - MIOSIS [None]
  - MULTIPLE DRUG OVERDOSE [None]
  - SEDATION [None]
